FAERS Safety Report 15349575 (Version 1)
Quarter: 2018Q4

REPORT INFORMATION
  Report Type: Spontaneous
  Country: US (occurrence: US)
  Receive Date: 20180904
  Receipt Date: 20180904
  Transmission Date: 20190204
  Serious: Yes (Other)
  Sender: FDA-Public Use
  Company Number: US-PRESTIGE BRANDS -2054606

PATIENT
  Age: 7 Month
  Sex: Female

DRUGS (1)
  1. BOUDREAUXS (ZINC OXIDE) [Suspect]
     Active Substance: ZINC OXIDE
     Indication: DERMATITIS DIAPER
     Route: 061

REACTIONS (6)
  - Skin haemorrhage [Recovered/Resolved]
  - Pain [Recovered/Resolved]
  - Blister [Recovering/Resolving]
  - Burns second degree [Recovering/Resolving]
  - Skin exfoliation [Recovering/Resolving]
  - Erythema [Recovering/Resolving]
